FAERS Safety Report 9175662 (Version 3)
Quarter: 2013Q2

REPORT INFORMATION
  Report Type: Report from Study
  Country: JP (occurrence: JP)
  Receive Date: 20130320
  Receipt Date: 20130530
  Transmission Date: 20140414
  Serious: Yes (Hospitalization, Other)
  Sender: FDA-Public Use
  Company Number: JP-JNJFOC-20130310011

PATIENT
  Age: 69 Year
  Sex: Male
  Weight: 65 kg

DRUGS (9)
  1. STELARA [Suspect]
     Indication: PSORIASIS
     Route: 058
     Dates: start: 20121116
  2. STELARA [Suspect]
     Indication: PSORIASIS
     Route: 058
     Dates: start: 20120824
  3. STELARA [Suspect]
     Indication: PSORIASIS
     Route: 058
     Dates: start: 20120726
  4. TOSUFLOXACIN [Suspect]
     Indication: PNEUMONIA
     Route: 048
     Dates: start: 20130111, end: 20130115
  5. MINOCYCLINE HYDROCHLORIDE [Suspect]
     Indication: PNEUMONIA
     Route: 048
     Dates: start: 20130111, end: 20130115
  6. ACICLOVIR [Suspect]
     Indication: PNEUMONIA
     Route: 048
     Dates: start: 20130115, end: 20130118
  7. OXAROL [Concomitant]
     Indication: PSORIASIS
     Route: 062
  8. RINDERON-V [Concomitant]
     Indication: PSORIASIS
     Route: 062
  9. HYDROCORTISONE BUTYRATE PROPIONATE [Concomitant]
     Indication: PSORIASIS
     Route: 062

REACTIONS (2)
  - Pneumonia [Recovered/Resolved]
  - Hepatic function abnormal [Recovering/Resolving]
